FAERS Safety Report 6022373-9 (Version None)
Quarter: 2008Q4

REPORT INFORMATION
  Report Type: 
  Country: None (occurrence: None)
  Receive Date: 20081230
  Receipt Date: 20080124
  Transmission Date: 20090506
  Serious: No
  Sender: FDA-Public Use
  Company Number: US-KINGPHARMUSA00001-K200800136

PATIENT
  Sex: Female
  Weight: 22.676 kg

DRUGS (4)
  1. INTAL [Suspect]
     Indication: PROPHYLAXIS
     Dosage: 4 PUFFS,BID
     Dates: start: 20071013
  2. SINGULAIR [Suspect]
     Indication: PROPHYLAXIS
     Dates: start: 20071013, end: 20080101
  3. FLUORIDE    /90006101/ [Concomitant]
  4. VITAMINS [Concomitant]

REACTIONS (4)
  - HEADACHE [None]
  - PATHOGEN RESISTANCE [None]
  - PNEUMONIA BACTERIAL [None]
  - PYREXIA [None]
